FAERS Safety Report 4587927-5 (Version None)
Quarter: 2005Q1

REPORT INFORMATION
  Report Type: 
  Country: None (occurrence: None)
  Receive Date: 20050215
  Receipt Date: 20050209
  Transmission Date: 20050727
  Serious: Yes (Death)
  Sender: FDA-Public Use
  Company Number: 2005AP01063

PATIENT
  Age: 74 Year
  Sex: Male

DRUGS (4)
  1. OMEPRAL [Suspect]
     Indication: GASTRODUODENAL ULCER
     Dosage: 20 MG DAILY PO
     Route: 048
     Dates: start: 20040901, end: 20050104
  2. ALFAROL [Concomitant]
  3. PLETAL [Concomitant]
  4. HALCION [Concomitant]

REACTIONS (2)
  - DISSEMINATED INTRAVASCULAR COAGULATION [None]
  - PLATELET COUNT DECREASED [None]
